FAERS Safety Report 19898764 (Version 1)
Quarter: 2021Q3

REPORT INFORMATION
  Report Type: Spontaneous
  Country: IT (occurrence: IT)
  Receive Date: 20210929
  Receipt Date: 20210929
  Transmission Date: 20211014
  Serious: Yes (Hospitalization)
  Sender: FDA-Public Use
  Company Number: IT-ABBVIE-21K-083-4096091-00

PATIENT
  Age: 70 Year
  Sex: Female

DRUGS (2)
  1. DEPAKINE [Suspect]
     Active Substance: VALPROATE SODIUM
     Indication: PRODUCT ADMINISTRATION ERROR
     Route: 048
     Dates: start: 20180901, end: 20180901
  2. QUETIAPINE FUMARATE. [Suspect]
     Active Substance: QUETIAPINE FUMARATE
     Indication: PRODUCT ADMINISTRATION ERROR
     Route: 048
     Dates: start: 20180901, end: 20180901

REACTIONS (3)
  - Prescription drug used without a prescription [Unknown]
  - Electrocardiogram QT prolonged [Recovering/Resolving]
  - Malaise [Recovering/Resolving]

NARRATIVE: CASE EVENT DATE: 20180910
